FAERS Safety Report 9504783 (Version 2)
Quarter: 2013Q3

REPORT INFORMATION
  Report Type: Spontaneous
  Country: US (occurrence: US)
  Receive Date: 20130906
  Receipt Date: 20130911
  Transmission Date: 20140515
  Serious: No
  Sender: FDA-Public Use
  Company Number: US-VERTEX PHARMACEUTICALS INC-2013-009215

PATIENT
  Age: 56 Year
  Sex: Male
  Weight: 74 kg

DRUGS (3)
  1. INCIVEK [Suspect]
     Indication: HEPATITIS C
     Dosage: 750 MG, TID
     Route: 048
     Dates: start: 20130818, end: 20130826
  2. RIBAVIRIN [Suspect]
     Indication: HEPATITIS C
     Dosage: 2 DF, BID
     Dates: start: 20130818, end: 20130826
  3. PEGASYS [Suspect]
     Indication: HEPATITIS C
     Dosage: UNK, QW
     Route: 058
     Dates: start: 20130818, end: 20130818

REACTIONS (3)
  - Diarrhoea haemorrhagic [Recovered/Resolved]
  - Varicose vein [Not Recovered/Not Resolved]
  - Diarrhoea [Not Recovered/Not Resolved]
